FAERS Safety Report 5467136-8 (Version None)
Quarter: 2007Q3

REPORT INFORMATION
  Report Type: 
  Country: None (occurrence: None)
  Receive Date: 20070921
  Receipt Date: 20070921
  Transmission Date: 20080115
  Serious: Yes (Other)
  Sender: FDA-Public Use
  Company Number: None

PATIENT
  Sex: Male
  Weight: 124.7392 kg

DRUGS (2)
  1. MIRAPEX [Suspect]
     Indication: RESTLESS LEGS SYNDROME
     Dosage: 1 TAB ONCE A DAY PO
     Route: 048
     Dates: start: 20060701, end: 20070801
  2. REQUIP [Suspect]
     Dosage: 1 TAB ONCE A DAY PO
     Route: 048
     Dates: start: 20060201, end: 20070920

REACTIONS (2)
  - GAMBLING [None]
  - WEIGHT INCREASED [None]
